FAERS Safety Report 18443360 (Version 1)
Quarter: 2020Q4

REPORT INFORMATION
  Report Type: Spontaneous
  Country: IN (occurrence: JP)
  Receive Date: 20201029
  Receipt Date: 20201029
  Transmission Date: 20210114
  Serious: Yes (Life-Threatening)
  Sender: FDA-Public Use
  Company Number: JP-ELI_LILLY_AND_COMPANY-JP202010010921

PATIENT
  Age: 76 Year
  Sex: Female

DRUGS (2)
  1. DOCETAXEL. [Suspect]
     Active Substance: DOCETAXEL
     Indication: STEWART-TREVES SYNDROME
     Dosage: 80 MG/M2, CYCLICAL
     Route: 065
  2. GEMCITABINE HYDROCHLORIDE. [Suspect]
     Active Substance: GEMCITABINE HYDROCHLORIDE
     Indication: STEWART-TREVES SYNDROME
     Dosage: 720 MG/M2, CYCLICAL
     Route: 065

REACTIONS (8)
  - Fatigue [Unknown]
  - Vomiting [Unknown]
  - Anaemia [Unknown]
  - Off label use [Unknown]
  - Weight decreased [Unknown]
  - Decreased appetite [Unknown]
  - Diarrhoea [Unknown]
  - Neutropenia [Unknown]
